FAERS Safety Report 4333798-1 (Version None)
Quarter: 2004Q2

REPORT INFORMATION
  Report Type: 
  Country: None (occurrence: None)
  Receive Date: 20040402
  Receipt Date: 20040317
  Transmission Date: 20050107
  Serious: Yes (Hospitalization)
  Sender: FDA-Public Use
  Company Number: MEDI-0001347

PATIENT
  Age: 7 Day
  Sex: Male
  Weight: 1.4 kg

DRUGS (6)
  1. SYNAGIS [Suspect]
     Indication: ANTIVIRAL PROPHYLAXIS
     Dosage: SEE IMAGE
     Route: 030
     Dates: start: 20031015, end: 20031015
  2. SYNAGIS [Suspect]
     Indication: ANTIVIRAL PROPHYLAXIS
     Dosage: SEE IMAGE
     Route: 030
     Dates: start: 20031114
  3. AMPICILLIN [Concomitant]
  4. GENTAMICIN [Concomitant]
  5. VANCOMYCIN [Concomitant]
  6. CAFFEINE (CAFFEINE) [Concomitant]

REACTIONS (2)
  - FEEDING DISORDER OF INFANCY OR EARLY CHILDHOOD [None]
  - HAEMATOCHEZIA [None]
